FAERS Safety Report 8226939-7 (Version None)
Quarter: 2012Q1

REPORT INFORMATION
  Report Type: 
  Country: None (occurrence: None)
  Receive Date: 20120322
  Receipt Date: 20120315
  Transmission Date: 20120608
  Serious: Yes (Other)
  Sender: FDA-Public Use
  Company Number: US-BAYER-200940591NA

PATIENT
  Age: 36 Year
  Sex: Male
  Weight: 133.9 kg

DRUGS (12)
  1. TRASYLOL [Suspect]
     Indication: MITRAL VALVE REPLACEMENT
     Dosage: INITIAL DOSE - 1ML
     Route: 042
     Dates: start: 20010302, end: 20010302
  2. AMRINONE [Concomitant]
     Dosage: UNK
     Route: 042
     Dates: start: 20010302
  3. ASPIRIN [Concomitant]
     Route: 048
  4. PROTAMINE SULFATE [Concomitant]
     Dosage: UNK
     Route: 042
     Dates: start: 20010302
  5. PRINIVIL [Concomitant]
     Dosage: 5 MG, QD
     Route: 048
  6. RED BLOOD CELLS [Concomitant]
  7. LASIX [Concomitant]
     Dosage: 40 MG, BID
     Route: 048
  8. SODIUM NITROPRUSSIDE [Concomitant]
     Dosage: UNK
     Route: 042
     Dates: start: 20010302
  9. TRASYLOL [Suspect]
     Dosage: LOADING DOSE - 200ML
  10. NITROGLYCERIN [Concomitant]
     Dosage: UNK
     Route: 042
     Dates: start: 20110302
  11. ANCEF [Concomitant]
     Dosage: 2 G, UNK
     Route: 042
     Dates: start: 20010303
  12. GENTAMICIN [Concomitant]
     Dosage: 160 MG, UNK
     Dates: start: 20010302

REACTIONS (11)
  - FEAR [None]
  - RENAL FAILURE [None]
  - RENAL INJURY [None]
  - ANHEDONIA [None]
  - RENAL IMPAIRMENT [None]
  - EMOTIONAL DISTRESS [None]
  - STRESS [None]
  - UNEVALUABLE EVENT [None]
  - PAIN [None]
  - ANXIETY [None]
  - INJURY [None]
